FAERS Safety Report 8978849 (Version 1)
Quarter: 2012Q4

REPORT INFORMATION
  Report Type: 
  Country: US (occurrence: US)
  Receive Date: 20121220
  Receipt Date: 20121220
  Transmission Date: 20130627
  Serious: Yes (Other)
  Sender: FDA-Public Use
  Company Number: US-TEVA-377026USA

PATIENT
  Age: 3 None
  Sex: Female

DRUGS (1)
  1. COPAXONE [Suspect]
     Dosage: The suspect medication was taken by the father
     Route: 065
     Dates: end: 201110

REACTIONS (1)
  - Abortion spontaneous [Unknown]
